FAERS Safety Report 8912249 (Version 1)
Quarter: 2012Q4

REPORT INFORMATION
  Report Type: 
  Country: US (occurrence: US)
  Receive Date: 20121116
  Receipt Date: 20121116
  Transmission Date: 20130627
  Serious: Yes (Hospitalization)
  Sender: FDA-Public Use
  Company Number: US-TEVA-2011001515

PATIENT
  Age: 82 Year
  Sex: Male
  Weight: 87.4 kg

DRUGS (2)
  1. TREANDA [Suspect]
     Indication: CHRONIC LYMPHOCYTIC LEUKAEMIA
     Route: 042
     Dates: start: 20110222, end: 20110222
  2. RITUXAN [Suspect]
     Indication: CHRONIC LYMPHOCYTIC LEUKAEMIA
     Dosage: 114.2857 Milligram Daily;
     Route: 042
     Dates: start: 20110106, end: 20110222

REACTIONS (6)
  - Hypoxia [Recovered/Resolved]
  - Tumour lysis syndrome [Recovered/Resolved]
  - Anaemia [Recovered/Resolved]
  - Wheezing [Recovered/Resolved]
  - Nausea [Recovered/Resolved]
  - Dyspnoea [Recovered/Resolved]
